FAERS Safety Report 5837239-4 (Version None)
Quarter: 2008Q3

REPORT INFORMATION
  Report Type: 
  Country: None (occurrence: None)
  Receive Date: 20080807
  Receipt Date: 20080731
  Transmission Date: 20090109
  Serious: Yes (Other)
  Sender: FDA-Public Use
  Company Number: ES-GENENTECH-265690

PATIENT
  Age: 51 Year

DRUGS (2)
  1. LUCENTIS [Suspect]
     Indication: HAEMANGIOMA OF RETINA
     Route: 031
  2. AVASTIN [Suspect]
     Indication: HAEMANGIOMA OF RETINA
     Route: 031

REACTIONS (1)
  - DRUG INEFFECTIVE [None]
